FAERS Safety Report 24065351 (Version 1)
Quarter: 2024Q3

REPORT INFORMATION
  Report Type: Spontaneous
  Country: ES (occurrence: ES)
  Receive Date: 20240709
  Receipt Date: 20240709
  Transmission Date: 20241016
  Serious: Yes (Hospitalization)
  Sender: TEVA
  Company Number: None

PATIENT
  Age: 75 Year
  Sex: Male

DRUGS (7)
  1. CLOPIDOGREL [Interacting]
     Active Substance: CLOPIDOGREL BISULFATE
     Indication: Acute myocardial infarction
     Dosage: CLOPIDOGREL (7300A)
     Route: 048
     Dates: start: 20240507, end: 20240523
  2. COLCHICINE [Interacting]
     Active Substance: COLCHICINE
     Indication: Pericarditis
     Dosage: COLCHICINA (142A)
     Route: 048
     Dates: start: 20240507, end: 20240523
  3. ASPIRIN [Interacting]
     Active Substance: ASPIRIN
     Indication: Hypertensive heart disease
     Dosage: 30 TABLETS (PVC-ALUMINUM)
     Route: 048
     Dates: start: 20230415, end: 20240506
  4. PRASUGREL [Interacting]
     Active Substance: PRASUGREL
     Indication: Acute myocardial infarction
     Dosage: TIME INTERVAL: TOTAL: PRASUGREL (8303A)
     Route: 048
     Dates: start: 20240504, end: 20240507
  5. HEPARIN SODIUM [Interacting]
     Active Substance: HEPARIN SODIUM
     Indication: Acute myocardial infarction
     Dosage: HEPARINA SODICA (1706SO)
     Route: 042
     Dates: start: 20240504, end: 20240504
  6. ENOXAPARIN [Interacting]
     Active Substance: ENOXAPARIN
     Indication: Acute myocardial infarction
     Dosage: ENOXAPARINA (2482A)
     Route: 058
     Dates: start: 20240504, end: 20240510
  7. ASPIRIN [Interacting]
     Active Substance: ASPIRIN
     Indication: Pericarditis
     Dosage: 20 TABLETS
     Route: 048
     Dates: start: 20240507, end: 20240523

REACTIONS (3)
  - Haematemesis [Recovered/Resolved]
  - Hypovolaemic shock [Recovered/Resolved]
  - Melaena [Recovered/Resolved]

NARRATIVE: CASE EVENT DATE: 20240510
